FAERS Safety Report 8510518-8 (Version None)
Quarter: 2012Q3

REPORT INFORMATION
  Report Type: 
  Country: None (occurrence: None)
  Receive Date: 20120716
  Receipt Date: 20120702
  Transmission Date: 20120928
  Serious: Yes (Other)
  Sender: FDA-Public Use
  Company Number: JP-MSD-1207JPN000275

PATIENT

DRUGS (2)
  1. SITAGLIPTIN PHOSPHATE [Suspect]
     Indication: TYPE 2 DIABETES MELLITUS
     Dosage: 50 MG, QD
     Route: 048
     Dates: start: 20120401, end: 20120601
  2. EPADEL [Concomitant]

REACTIONS (7)
  - RHABDOMYOLYSIS [None]
  - DYSPNOEA [None]
  - SOMNOLENCE [None]
  - DECREASED APPETITE [None]
  - PALPITATIONS [None]
  - HEPATIC FUNCTION ABNORMAL [None]
  - JAUNDICE [None]
